FAERS Safety Report 8619646-X (Version None)
Quarter: 2012Q3

REPORT INFORMATION
  Report Type: 
  Country: None (occurrence: None)
  Receive Date: 20120824
  Receipt Date: 20120808
  Transmission Date: 20120928
  Serious: No
  Sender: FDA-Public Use
  Company Number: US-009507513-1208USA004238

PATIENT

DRUGS (3)
  1. SAPHRIS [Suspect]
     Indication: BIPOLAR DISORDER
     Dosage: 5 MG, QD
     Route: 060
     Dates: start: 20120803
  2. SAPHRIS [Suspect]
     Dosage: HALF THE MEDICATION, QD
     Dates: end: 20120808
  3. LITHIUM CARBONATE [Concomitant]
     Dosage: 400 MG, BID

REACTIONS (2)
  - OEDEMA PERIPHERAL [None]
  - DRUG PRESCRIBING ERROR [None]
